FAERS Safety Report 6044417-0 (Version None)
Quarter: 2009Q1

REPORT INFORMATION
  Report Type: 
  Country: None (occurrence: None)
  Receive Date: 20090115
  Receipt Date: 20090115
  Transmission Date: 20090719
  Serious: No
  Sender: FDA-Public Use
  Company Number: None

PATIENT
  Age: 59 Year
  Sex: Male
  Weight: 101.5 kg

DRUGS (2)
  1. PREGABALIN [Suspect]
     Indication: FIBROMYALGIA
     Dosage: 50MG TID PO
     Route: 048
     Dates: start: 20081118, end: 20081205
  2. PREGABALIN [Suspect]
     Indication: PAIN
     Dosage: 50MG TID PO
     Route: 048
     Dates: start: 20081118, end: 20081205

REACTIONS (3)
  - AFFECT LABILITY [None]
  - ANGER [None]
  - PAIN [None]
